FAERS Safety Report 21733623 (Version 2)
Quarter: 2022Q4

REPORT INFORMATION
  Report Type: Other
  Country: CN (occurrence: None)
  Receive Date: 20221215
  Receipt Date: 20221219
  Transmission Date: 20230112
  Serious: Yes (Death)
  Sender: FDA-Public Use
  Company Number: CN-ROCHE-3241420

PATIENT
  Age: 55 Year
  Sex: Male

DRUGS (3)
  1. ALECTINIB [Suspect]
     Active Substance: ALECTINIB
     Indication: Non-small cell lung cancer
     Route: 065
     Dates: start: 202001
  2. CRIZOTINIB [Suspect]
     Active Substance: CRIZOTINIB
     Indication: Non-small cell lung cancer
     Route: 065
     Dates: start: 201809, end: 201903
  3. CERITINIB [Suspect]
     Active Substance: CERITINIB
     Indication: Non-small cell lung cancer
     Route: 065
     Dates: start: 201905, end: 201911

REACTIONS (3)
  - Disease progression [Fatal]
  - Drug resistance [Fatal]
  - Drug ineffective [Unknown]
